FAERS Safety Report 23486328 (Version 1)
Quarter: 2024Q1

REPORT INFORMATION
  Report Type: Spontaneous
  Country: None (occurrence: FR)
  Receive Date: 20240206
  Receipt Date: 20240206
  Transmission Date: 20240410
  Serious: Yes (Other)
  Sender: FDA-Public Use
  Company Number: FR-B.Braun Medical Inc.-2152675

PATIENT
  Age: 41 Year
  Sex: Male
  Weight: 71 kg

DRUGS (5)
  1. METRONIDAZOLE [Suspect]
     Active Substance: METRONIDAZOLE
     Indication: Legionella infection
     Route: 042
     Dates: start: 20231124, end: 20231127
  2. SPIRAMYCIN [Suspect]
     Active Substance: SPIRAMYCIN
  3. PANTOPRAZOLE [Suspect]
     Active Substance: PANTOPRAZOLE
  4. LEVOFLOXACIN [Suspect]
     Active Substance: LEVOFLOXACIN
  5. SEVELAMER CARBONATE [Suspect]
     Active Substance: SEVELAMER CARBONATE

REACTIONS (1)
  - Dermatitis exfoliative generalised [None]
